FAERS Safety Report 22925800 (Version 13)
Quarter: 2025Q2

REPORT INFORMATION
  Report Type: Spontaneous
  Country: AR (occurrence: AR)
  Receive Date: 20230908
  Receipt Date: 20250429
  Transmission Date: 20250717
  Serious: Yes (Hospitalization, Other)
  Sender: GLAXOSMITHKLINE
  Company Number: AR-GLAXOSMITHKLINE-AR2023AMR119978

PATIENT

DRUGS (1)
  1. ZEJULA [Suspect]
     Active Substance: NIRAPARIB
     Indication: Product used for unknown indication

REACTIONS (11)
  - Ill-defined disorder [Unknown]
  - Intestinal operation [Recovered/Resolved]
  - Ileostomy [Recovered/Resolved]
  - Immobile [Unknown]
  - Weight decreased [Unknown]
  - Diarrhoea [Recovering/Resolving]
  - Fatigue [Unknown]
  - Gastroenteritis [Unknown]
  - Abdominal discomfort [Unknown]
  - Muscle spasms [Unknown]
  - Intentional dose omission [Unknown]
